FAERS Safety Report 5032978-X (Version None)
Quarter: 2006Q2

REPORT INFORMATION
  Report Type: 
  Country: None (occurrence: None)
  Receive Date: 20060515
  Receipt Date: 20060308
  Transmission Date: 20061013
  Serious: No
  Sender: FDA-Public Use
  Company Number: S06-USA-01044-01

PATIENT
  Age: 76 Year
  Sex: Female

DRUGS (7)
  1. NAMENDA [Suspect]
     Indication: DEMENTIA
     Dosage: 5 MG QD PO
     Route: 048
     Dates: start: 20060118, end: 20060124
  2. NAMENDA [Suspect]
     Indication: DEMENTIA
     Dosage: 5 MG BID PO
     Route: 048
     Dates: start: 20060125, end: 20060131
  3. NAMENDA [Suspect]
     Indication: DEMENTIA
     Dosage: 15 MG QD PO
     Route: 048
     Dates: start: 20060201, end: 20060207
  4. NAMENDA [Suspect]
     Indication: DEMENTIA
     Dosage: 10 MG  BID  PO
     Route: 048
     Dates: start: 20060208
  5. PAXIL [Concomitant]
  6. CHOLESTEROL MEDICATION (NOS) [Concomitant]
  7. THYROID MEDICATION (NOS) [Concomitant]

REACTIONS (2)
  - ABNORMAL DREAMS [None]
  - HEADACHE [None]
